FAERS Safety Report 8279090-4 (Version None)
Quarter: 2012Q2

REPORT INFORMATION
  Report Type: 
  Country: None (occurrence: None)
  Receive Date: 20120412
  Receipt Date: 20111123
  Transmission Date: 20120825
  Serious: No
  Sender: FDA-Public Use
  Company Number: US-ASTRAZENECA-2011SE70567

PATIENT
  Sex: Male

DRUGS (7)
  1. PRILOSEC [Suspect]
     Route: 048
  2. PROTONIX [Concomitant]
  3. PRILOSEC [Suspect]
     Route: 048
  4. NEXIUM [Suspect]
     Indication: GASTROOESOPHAGEAL REFLUX DISEASE
     Route: 048
  5. ZANTAC [Concomitant]
  6. AXID [Concomitant]
  7. PREVACID [Concomitant]

REACTIONS (4)
  - OESOPHAGITIS [None]
  - GASTROINTESTINAL INFLAMMATION [None]
  - HIATUS HERNIA [None]
  - DRUG INEFFECTIVE [None]
